FAERS Safety Report 7213704-2 (Version None)
Quarter: 2011Q1

REPORT INFORMATION
  Report Type: 
  Country: None (occurrence: None)
  Receive Date: 20110106
  Receipt Date: 20110103
  Transmission Date: 20110831
  Serious: Yes (Death, Life-Threatening, Hospitalization)
  Sender: FDA-Public Use
  Company Number: GB-PFIZER INC-GB-WYE-G03423009

PATIENT
  Age: 68 Year
  Sex: Male
  Weight: 90 kg

DRUGS (11)
  1. EFFEXOR [Suspect]
     Dosage: 150 MG (FREQUENCY UNKNOWN)
     Route: 048
     Dates: start: 20090226, end: 20090305
  2. CETIRIZINE [Concomitant]
     Dosage: 10 MG, 1X/DAY
     Route: 048
  3. OMEPRAZOLE [Concomitant]
     Dosage: 10 MG, 1X/DAY
     Route: 048
  4. PAROXETINE [Suspect]
     Dosage: OVERDOSE AMOUNT UNKNOWN
     Route: 065
     Dates: start: 20090301, end: 20090301
  5. CODEINE [Suspect]
     Dosage: OVERDOSE AMOUNT UNKNOWN
     Route: 065
     Dates: start: 20090301, end: 20090301
  6. SIMVASTATIN [Concomitant]
     Dosage: 80 MG, 1X/DAY
     Route: 065
  7. ANADIN PARACETAMOL [Suspect]
     Dosage: OVERDOSE AMOUNT UNKNOWN
     Route: 065
     Dates: start: 20090301, end: 20090301
  8. MOMETASONE [Concomitant]
     Dosage: 50 UG, 2X/DAY
     Route: 045
  9. CANDESARTAN [Concomitant]
     Dosage: 16 MG, 1X/DAY
     Route: 065
  10. DIAZEPAM [Concomitant]
     Dosage: 2 MG, 4X/DAY
     Route: 048
  11. ZOPICLONE [Concomitant]
     Dosage: 7.5 MG, 1X/DAY
     Route: 065

REACTIONS (2)
  - INTENTIONAL OVERDOSE [None]
  - THROMBOCYTOPENIA [None]
